FAERS Safety Report 16053341 (Version 1)
Quarter: 2019Q1

REPORT INFORMATION
  Report Type: Spontaneous
  Country: DE (occurrence: DE)
  Receive Date: 20190308
  Receipt Date: 20190308
  Transmission Date: 20190418
  Serious: Yes (Other)
  Sender: FDA-Public Use
  Company Number: DE-MYLANLABS-2019M1021143

PATIENT
  Age: 66 Year
  Sex: Male
  Weight: 108 kg

DRUGS (2)
  1. LEVOFLOXACIN. [Suspect]
     Active Substance: LEVOFLOXACIN
     Indication: PROSTATITIS
     Dosage: 2X500MG FUENF TAGE, DANN 1X500MG
     Route: 048
     Dates: start: 20170112
  2. LEVOFLOXACIN. [Suspect]
     Active Substance: LEVOFLOXACIN
     Indication: UROSEPSIS

REACTIONS (5)
  - Tendon rupture [Recovered/Resolved with Sequelae]
  - Tendon pain [Recovered/Resolved with Sequelae]
  - Muscle rupture [Recovered/Resolved with Sequelae]
  - Plantar fasciitis [Recovered/Resolved]
  - Depression [Recovered/Resolved]

NARRATIVE: CASE EVENT DATE: 20170115
